FAERS Safety Report 20330810 (Version 1)
Quarter: 2022Q1

REPORT INFORMATION
  Report Type: Spontaneous
  Country: CN (occurrence: None)
  Receive Date: 20220113
  Receipt Date: 20220113
  Transmission Date: 20220423
  Serious: Yes (Other)
  Sender: FDA-Public Use
  Company Number: 2022A014834

PATIENT
  Age: 18371 Day
  Sex: Female

DRUGS (1)
  1. DAPAGLIFLOZIN [Suspect]
     Active Substance: DAPAGLIFLOZIN
     Indication: Blood glucose
     Route: 048
     Dates: start: 20211218, end: 20211219

REACTIONS (4)
  - Adverse drug reaction [Recovering/Resolving]
  - Hyperhidrosis [Unknown]
  - Hypotension [Unknown]
  - Polyuria [Unknown]

NARRATIVE: CASE EVENT DATE: 20211219
